FAERS Safety Report 19850239 (Version 1)
Quarter: 2021Q3

REPORT INFORMATION
  Report Type: Report from Study
  Country: GB (occurrence: GB)
  Receive Date: 20210918
  Receipt Date: 20210918
  Transmission Date: 20211014
  Serious: Yes (Hospitalization)
  Sender: FDA-Public Use
  Company Number: GB-ACCORD-238886

PATIENT
  Age: 63 Year
  Sex: Female
  Weight: 66.5 kg

DRUGS (23)
  1. ETOPOSIDE. [Suspect]
     Active Substance: ETOPOSIDE
     Indication: NON-SMALL CELL LUNG CANCER
     Route: 065
     Dates: start: 20210316
  2. E45 [Concomitant]
     Active Substance: LANOLIN\LIGHT MINERAL OIL\PARAFFIN
  3. AMOXICILLIN. [Concomitant]
     Active Substance: AMOXICILLIN
  4. AQUEOUS CREAM [Concomitant]
  5. APIXABAN [Concomitant]
     Active Substance: APIXABAN
  6. OMEPRAZOLE. [Concomitant]
     Active Substance: OMEPRAZOLE
  7. CARBOPLATIN. [Suspect]
     Active Substance: CARBOPLATIN
     Indication: NON-SMALL CELL LUNG CANCER
     Route: 065
     Dates: start: 20210316
  8. PARACETAMOL [Concomitant]
     Active Substance: ACETAMINOPHEN
  9. CLOTRIMAZOLE. [Concomitant]
     Active Substance: CLOTRIMAZOLE
  10. ATEZOLIZUMAB. [Suspect]
     Active Substance: ATEZOLIZUMAB
     Indication: NON-SMALL CELL LUNG CANCER
     Dosage: DOSE LAST STUDY DRUG ADMIN PRIOR AE AND SAE : 1680 MG, START DATE OF MOST RECENT DOSE OF STUDY DRUG
     Route: 041
     Dates: start: 20210316
  11. ETOPOSIDE. [Suspect]
     Active Substance: ETOPOSIDE
     Indication: PRODUCT USED FOR UNKNOWN INDICATION
     Route: 048
     Dates: start: 20210407
  12. LAXIDO [Concomitant]
     Active Substance: POLYETHYLENE GLYCOL 3350\POTASSIUM CHLORIDE\SODIUM BICARBONATE\SODIUM CHLORIDE
  13. ACICLOVIR [Concomitant]
     Active Substance: ACYCLOVIR
  14. DIGOXIN. [Concomitant]
     Active Substance: DIGOXIN
  15. DOCUSATE [Concomitant]
     Active Substance: DOCUSATE
  16. GLICLAZIDE [Concomitant]
     Active Substance: GLICLAZIDE
  17. PREDNISOLONE. [Concomitant]
     Active Substance: PREDNISOLONE
  18. SALBUTAMOL [Concomitant]
     Active Substance: ALBUTEROL
  19. BISOPROLOL [Concomitant]
     Active Substance: BISOPROLOL
  20. FILGRASTIM [Concomitant]
     Active Substance: FILGRASTIM
  21. FLUCONAZOLE. [Concomitant]
     Active Substance: FLUCONAZOLE
  22. FLUDROCORTISONE [Concomitant]
     Active Substance: FLUDROCORTISONE
  23. METFORMIN [Concomitant]
     Active Substance: METFORMIN HYDROCHLORIDE

REACTIONS (1)
  - Immune-mediated enterocolitis [Recovered/Resolved]

NARRATIVE: CASE EVENT DATE: 20210818
